FAERS Safety Report 5496732-7 (Version None)
Quarter: 2007Q4

REPORT INFORMATION
  Report Type: 
  Country: None (occurrence: None)
  Receive Date: 20071025
  Receipt Date: 20070816
  Transmission Date: 20080405
  Serious: No
  Sender: FDA-Public Use
  Company Number: A0668665A

PATIENT
  Age: 83 Year
  Sex: Male

DRUGS (4)
  1. ADVAIR DISKUS 100/50 [Suspect]
     Route: 055
     Dates: start: 20070802, end: 20070805
  2. SIMVASTATIN [Concomitant]
  3. UNKNOWN MEDICATION [Concomitant]
  4. METOPROLOL [Concomitant]

REACTIONS (2)
  - APHONIA [None]
  - COUGH [None]
